FAERS Safety Report 10030954 (Version 2)
Quarter: 2014Q1

REPORT INFORMATION
  Report Type: Report from Study
  Country: US (occurrence: US)
  Receive Date: 20140323
  Receipt Date: 20140323
  Transmission Date: 20141002
  Serious: Yes (Death, Hospitalization)
  Sender: FDA-Public Use
  Company Number: US-BRISTOL-MYERS SQUIBB COMPANY-20276374

PATIENT
  Age: 66 Year
  Sex: Male
  Weight: 72.2 kg

DRUGS (21)
  1. PACLITAXEL [Suspect]
     Indication: NON-SMALL CELL LUNG CANCER
     Dosage: DAY 1 OF EVERY 3 WEEK CYCLE.?PRIOR TO SAE DOSE ON:27SEP13
     Route: 042
     Dates: start: 20130726, end: 20130927
  2. CARBOPLATIN [Suspect]
     Indication: NON-SMALL CELL LUNG CANCER
     Dosage: AUC 6. DAY 1 OF EVERY 3 WEEK CYCLE.
     Route: 042
     Dates: start: 20130726
  3. NECITUMUMAB [Suspect]
     Indication: NON-SMALL CELL LUNG CANCER
     Dosage: DAYS 1 AND 8 OF EVERY 3 WEEK CYCLE.?LIQUID?26DEC13-10DEC13?PRIOR TO SAE DOSE ON 10DDEC13
     Route: 042
     Dates: start: 20130726, end: 20140124
  4. SYMBICORT [Concomitant]
     Dates: start: 20130213
  5. IPRATROPIUM + ALBUTEROL [Concomitant]
     Dates: start: 20130213
  6. CARVEDILOL [Concomitant]
     Indication: CARDIAC DISORDER
     Dates: start: 20130213
  7. AZELASTINE [Concomitant]
     Indication: DYSPNOEA
     Dates: start: 20130213
  8. ATORVASTATIN [Concomitant]
     Indication: BLOOD CHOLESTEROL INCREASED
     Dates: start: 20130223
  9. LASIX [Concomitant]
     Indication: CARDIAC FAILURE CONGESTIVE
     Dates: start: 20130223
  10. BUDESONIDE [Concomitant]
  11. BABY ASPIRIN [Concomitant]
     Indication: CARDIAC DISORDER
     Route: 048
     Dates: start: 20130223
  12. NOVOLOG [Concomitant]
     Indication: DIABETES MELLITUS
     Dates: start: 20130223
  13. GLIPIZIDE [Concomitant]
     Indication: DIABETES MELLITUS
     Dates: start: 20130927
  14. WARFARIN [Concomitant]
     Dates: start: 20130223
  15. LISINOPRIL [Concomitant]
     Indication: HYPERTENSION
     Dates: start: 20130223
  16. ELAVIL [Concomitant]
     Indication: NEURALGIA
     Dates: start: 20131213
  17. GABAPENTIN [Concomitant]
     Indication: NEUROPATHY PERIPHERAL
     Dates: start: 20131213
  18. ALIGN [Concomitant]
     Indication: PROPHYLAXIS
     Dates: start: 20130822
  19. MAGNESIUM OXIDE [Concomitant]
     Indication: HYPOMAGNESAEMIA
     Dates: start: 20140117
  20. CLINDAMYCIN [Concomitant]
     Indication: RASH
     Dates: start: 20140124
  21. HYDROCORTISONE [Concomitant]
     Indication: RASH
     Dates: start: 20140124

REACTIONS (3)
  - Cardiac failure congestive [Fatal]
  - Pneumonia [Recovered/Resolved]
  - Hypocalcaemia [Recovered/Resolved]
